FAERS Safety Report 18089812 (Version 3)
Quarter: 2021Q4

REPORT INFORMATION
  Report Type: Spontaneous
  Country: JP (occurrence: JP)
  Receive Date: 20200729
  Receipt Date: 20211222
  Transmission Date: 20220303
  Serious: Yes (Other)
  Sender: FDA-Public Use
  Company Number: JP-SANOFI-2020SA188713

PATIENT
  Age: 5 Month
  Sex: Female

DRUGS (6)
  1. SABRIL [Suspect]
     Active Substance: VIGABATRIN
     Indication: Infantile spasms
     Dosage: 125 MG, BID
     Route: 048
     Dates: start: 20200312, end: 20200409
  2. SABRIL [Suspect]
     Active Substance: VIGABATRIN
     Dosage: 150 MG, BID
     Route: 048
     Dates: start: 20190719, end: 20190723
  3. SABRIL [Suspect]
     Active Substance: VIGABATRIN
     Dosage: 325 MG, BID
     Route: 048
     Dates: start: 20190723, end: 20190727
  4. SABRIL [Suspect]
     Active Substance: VIGABATRIN
     Dosage: 500 MG, BID
     Route: 048
     Dates: start: 20190727, end: 20200213
  5. SABRIL [Suspect]
     Active Substance: VIGABATRIN
     Dosage: 250 MG, BID
     Route: 048
     Dates: start: 20200213, end: 20200312
  6. VALPROATE SODIUM [Concomitant]
     Active Substance: VALPROATE SODIUM
     Indication: Infantile spasms
     Dosage: DAILY DOSE: 200 MG
     Route: 048
     Dates: start: 20190706

REACTIONS (1)
  - Ophthalmological examination abnormal [Unknown]
